FAERS Safety Report 8156105-5 (Version None)
Quarter: 2012Q1

REPORT INFORMATION
  Report Type: 
  Country: None (occurrence: None)
  Receive Date: 20120222
  Receipt Date: 20120220
  Transmission Date: 20120608
  Serious: Yes (Disabling, Other)
  Sender: FDA-Public Use
  Company Number: US-PFIZER INC-2012044809

PATIENT
  Sex: Female
  Weight: 81.633 kg

DRUGS (2)
  1. CHANTIX [Suspect]
     Indication: SMOKING CESSATION THERAPY
     Dosage: 0.5 MG, DAILY
     Route: 048
     Dates: end: 20120209
  2. XANAX [Suspect]
     Indication: ANXIETY
     Dosage: 0.25 MG, AS NEEDED
     Route: 048

REACTIONS (9)
  - NEURALGIA [None]
  - BREAST TENDERNESS [None]
  - DYSSTASIA [None]
  - MYALGIA [None]
  - FATIGUE [None]
  - INSOMNIA [None]
  - ARTHRALGIA [None]
  - PAIN IN EXTREMITY [None]
  - ANXIETY [None]
